FAERS Safety Report 4541237-0 (Version None)
Quarter: 2004Q4

REPORT INFORMATION
  Report Type: 
  Country: None (occurrence: None)
  Receive Date: 20041228
  Receipt Date: 20041215
  Transmission Date: 20050328
  Serious: Yes (Hospitalization)
  Sender: FDA-Public Use
  Company Number: F03200400123

PATIENT
  Age: 64 Year
  Sex: Male

DRUGS (3)
  1. OXALIPLATIN [Suspect]
     Indication: COLON CANCER
     Dosage: 65 MG/M2 OTHER - INTRAVENOUS NOS
     Route: 042
     Dates: start: 20041117, end: 20041117
  2. FLOUROURACIL - SOLUTION-UNIT DOSE [Suspect]
     Indication: COLON CANCER
     Dosage: 610 MG IV BOLUS AND APPROXIMATELY 2245 MG OF CONTINUOUS INFUSION - INTRAVENOUS NOS
     Route: 042
     Dates: start: 20041117, end: 20041118
  3. LEUCOVORIN CALCIUM - SOLUTION [Suspect]
     Indication: COLON CANCER
     Dosage: 400 MG/ SQUARE METER 1/1 CYCLE - INTRAVENOUS NOS
     Route: 042
     Dates: start: 20041117, end: 20041117

REACTIONS (8)
  - CEREBRAL INFARCTION [None]
  - CEREBRAL ISCHAEMIA [None]
  - CEREBROVASCULAR ACCIDENT [None]
  - INTERNATIONAL NORMALISED RATIO INCREASED [None]
  - NEUROPATHY PERIPHERAL [None]
  - PERIPHERAL MOTOR NEUROPATHY [None]
  - PERIPHERAL SENSORY NEUROPATHY [None]
  - PROTHROMBIN TIME PROLONGED [None]
